FAERS Safety Report 22352945 (Version 1)
Quarter: 2023Q2

REPORT INFORMATION
  Report Type: Spontaneous
  Country: HR (occurrence: None)
  Receive Date: 20230523
  Receipt Date: 20230523
  Transmission Date: 20230722
  Serious: Yes (Other)
  Sender: FDA-Public Use
  Company Number: HR-Merck Healthcare KGaA-9403102

PATIENT
  Age: 50 Year
  Sex: Female
  Weight: 68 kg

DRUGS (6)
  1. CLADRIBINE [Suspect]
     Active Substance: CLADRIBINE
     Indication: Relapsing-remitting multiple sclerosis
     Dosage: YEAR ONE MONTH ONE THERAPY
     Dates: start: 201904
  2. CLADRIBINE [Suspect]
     Active Substance: CLADRIBINE
     Dosage: YEAR ONE MONTH TWO THERAPY
     Dates: start: 201905
  3. CLADRIBINE [Suspect]
     Active Substance: CLADRIBINE
     Dosage: YEAR TWO MONTH ONE THERAPY
     Dates: start: 202005
  4. CLADRIBINE [Suspect]
     Active Substance: CLADRIBINE
     Dosage: YEAR TWO MONTH TWO THERAPY
     Dates: start: 202006
  5. CLADRIBINE [Suspect]
     Active Substance: CLADRIBINE
     Dosage: NEW CYCLE MONTH ONE THERAPY
     Dates: start: 202302
  6. CLADRIBINE [Suspect]
     Active Substance: CLADRIBINE
     Dosage: NEW CYCLE MONTH TWO THERAPY
     Dates: start: 202303

REACTIONS (2)
  - Ophthalmoplegia [Unknown]
  - Multiple sclerosis relapse [Unknown]

NARRATIVE: CASE EVENT DATE: 20210601
